FAERS Safety Report 14405392 (Version 2)
Quarter: 2018Q1

REPORT INFORMATION
  Report Type: Spontaneous
  Country: US (occurrence: US)
  Receive Date: 20180118
  Receipt Date: 20180201
  Transmission Date: 20180509
  Serious: Yes (Other)
  Sender: FDA-Public Use
  Company Number: US-TEVA-2018-US-845365

PATIENT
  Sex: Female

DRUGS (4)
  1. LORAZEPAM. [Interacting]
     Active Substance: LORAZEPAM
     Indication: PANIC ATTACK
  2. VITAMIN D [Interacting]
     Active Substance: CHOLECALCIFEROL
  3. LORAZEPAM. [Suspect]
     Active Substance: LORAZEPAM
     Indication: ANXIETY
     Dosage: BID TO TID
     Route: 048
     Dates: start: 2011, end: 2017
  4. LORAZEPAM. [Interacting]
     Active Substance: LORAZEPAM
     Indication: INSOMNIA

REACTIONS (8)
  - Wrong technique in product usage process [Unknown]
  - Malaise [Unknown]
  - Drug hypersensitivity [Unknown]
  - Rash [Unknown]
  - Drug interaction [Unknown]
  - Headache [Unknown]
  - Drug dependence [Recovered/Resolved]
  - Vitamin D decreased [Unknown]

NARRATIVE: CASE EVENT DATE: 201705
